FAERS Safety Report 16738248 (Version 1)
Quarter: 2019Q3

REPORT INFORMATION
  Report Type: Spontaneous
  Country: US (occurrence: US)
  Receive Date: 20190825
  Receipt Date: 20190825
  Transmission Date: 20191005
  Serious: No
  Sender: FDA-Public Use
  Company Number: US-EMD SERONO-9111462

PATIENT
  Sex: Female
  Weight: 82 kg

DRUGS (7)
  1. VITAMIN E                          /00110501/ [Concomitant]
     Active Substance: TOCOPHEROL
     Indication: PRODUCT USED FOR UNKNOWN INDICATION
  2. ATENOLOL. [Concomitant]
     Active Substance: ATENOLOL
     Indication: PRODUCT USED FOR UNKNOWN INDICATION
  3. ELIQUIS [Suspect]
     Active Substance: APIXABAN
     Indication: ATRIAL FIBRILLATION
     Dates: start: 2017
  4. ROSUVASTATIN. [Concomitant]
     Active Substance: ROSUVASTATIN
     Indication: PRODUCT USED FOR UNKNOWN INDICATION
  5. LISINOPRIL HCT                     /01613901/ [Concomitant]
     Active Substance: HYDROCHLOROTHIAZIDE\LISINOPRIL
     Indication: PRODUCT USED FOR UNKNOWN INDICATION
  6. VITAMIN C [Concomitant]
     Active Substance: ASCORBIC ACID
     Indication: PRODUCT USED FOR UNKNOWN INDICATION
  7. METFORMIN [Suspect]
     Active Substance: METFORMIN HYDROCHLORIDE
     Indication: PRODUCT USED FOR UNKNOWN INDICATION

REACTIONS (1)
  - Gastrointestinal disorder [Unknown]
